FAERS Safety Report 11387275 (Version 1)
Quarter: 2015Q3

REPORT INFORMATION
  Report Type: Spontaneous
  Country: US (occurrence: US)
  Receive Date: 20150817
  Receipt Date: 20150817
  Transmission Date: 20151125
  Serious: No
  Sender: FDA-Public Use
  Company Number: PHEH2015US012116

PATIENT
  Age: 65 Year
  Sex: Female

DRUGS (1)
  1. FARYDAK [Suspect]
     Active Substance: PANOBINOSTAT
     Indication: PRODUCT USED FOR UNKNOWN INDICATION
     Dosage: UNK
     Route: 065
     Dates: start: 20150423

REACTIONS (2)
  - Diarrhoea [Recovering/Resolving]
  - Electrocardiogram abnormal [Unknown]

NARRATIVE: CASE EVENT DATE: 20150623
